FAERS Safety Report 4650708-8 (Version None)
Quarter: 2005Q2

REPORT INFORMATION
  Report Type: 
  Country: None (occurrence: None)
  Receive Date: 20050429
  Receipt Date: 20050420
  Transmission Date: 20051028
  Serious: Yes (Other)
  Sender: FDA-Public Use
  Company Number: 213954

PATIENT
  Age: 53 Year
  Sex: Male

DRUGS (6)
  1. AVASTIN [Suspect]
     Indication: COLON CANCER METASTATIC
     Dosage: 493 MG
     Dates: start: 20050224, end: 20050317
  2. ERLOTINIB (ERLOTINIB) [Suspect]
     Indication: COLON CANCER METASTATIC
     Dosage: 150 MG
     Dates: start: 20050224, end: 20050317
  3. OXALIPLATIN (OXALIPLATIN) [Concomitant]
     Indication: COLON CANCER METASTATIC
     Dosage: 188 MG
     Dates: start: 20050224, end: 20050317
  4. FLUOROURACIL [Suspect]
     Indication: COLON CANCER METASTATIC
     Dosage: SEE IMAGE
     Dates: start: 20050224, end: 20050317
  5. FLUOROURACIL [Suspect]
     Indication: COLON CANCER METASTATIC
     Dosage: SEE IMAGE
     Dates: start: 20050224, end: 20050317
  6. LEUCOVORIN CALCIUM [Suspect]
     Indication: COLON CANCER METASTATIC
     Dosage: 884 MG
     Dates: start: 20050224, end: 20050317

REACTIONS (9)
  - ABDOMINAL PAIN [None]
  - DEHYDRATION [None]
  - DIARRHOEA [None]
  - DRUG TOXICITY [None]
  - LARGE INTESTINE PERFORATION [None]
  - ORAL INTAKE REDUCED [None]
  - PLEURAL EFFUSION [None]
  - TACHYCARDIA [None]
  - THROMBOSIS [None]
